FAERS Safety Report 17198732 (Version 2)
Quarter: 2020Q1

REPORT INFORMATION
  Report Type: Spontaneous
  Country: ES (occurrence: ES)
  Receive Date: 20191225
  Receipt Date: 20200318
  Transmission Date: 20200409
  Serious: Yes (Hospitalization)
  Sender: FDA-Public Use
  Company Number: ES-ALLERGAN-1952837US

PATIENT
  Sex: Male

DRUGS (3)
  1. MESALAZINE UNK [Suspect]
     Active Substance: MESALAMINE
     Indication: COLITIS ULCERATIVE
     Dosage: 4 G, DAILY
     Route: 048
  2. ENALAPRIL [Concomitant]
     Active Substance: ENALAPRIL
     Indication: HYPERTENSION
  3. MESALAZINE UNK [Suspect]
     Active Substance: MESALAMINE
     Dosage: UNK
     Route: 061

REACTIONS (3)
  - Rash pruritic [Recovered/Resolved]
  - Pyrexia [Unknown]
  - Pneumonitis [Recovered/Resolved]
